FAERS Safety Report 5976159-1 (Version None)
Quarter: 2008Q4

REPORT INFORMATION
  Report Type: 
  Country: None (occurrence: None)
  Receive Date: 20081202
  Receipt Date: 20080211
  Transmission Date: 20090506
  Serious: No
  Sender: FDA-Public Use
  Company Number: US-AMGEN-KDL265092

PATIENT
  Sex: Male

DRUGS (2)
  1. ENBREL [Suspect]
     Indication: RHEUMATOID ARTHRITIS
     Route: 058
     Dates: start: 20070905
  2. SULFASALAZINE [Concomitant]
     Route: 048
     Dates: start: 20070905

REACTIONS (3)
  - PRURITUS [None]
  - RASH [None]
  - RASH ERYTHEMATOUS [None]
